FAERS Safety Report 8246047-9 (Version None)
Quarter: 2012Q1

REPORT INFORMATION
  Report Type: 
  Country: None (occurrence: None)
  Receive Date: 20120328
  Receipt Date: 20120328
  Transmission Date: 20120608
  Serious: Yes (Death)
  Sender: FDA-Public Use
  Company Number: None

PATIENT
  Age: 52 Year
  Sex: Male
  Weight: 77.1115 kg

DRUGS (2)
  1. VIGAMOX [Suspect]
     Indication: CATARACT OPERATION
     Dosage: 1 DROP 3X DAILY OPTHALMIC 046
     Route: 047
  2. PREDNISOLONE ACETATE [Suspect]
     Indication: CATARACT OPERATION
     Dosage: 1 DROP 3X DAILY OPTHALMIC 046
     Route: 047
     Dates: start: 20110820, end: 20110903

REACTIONS (6)
  - DYSPNOEA [None]
  - THROAT IRRITATION [None]
  - WHEEZING [None]
  - LOSS OF CONSCIOUSNESS [None]
  - ASTHMA [None]
  - CONDITION AGGRAVATED [None]
